FAERS Safety Report 11116667 (Version 1)
Quarter: 2015Q2

REPORT INFORMATION
  Report Type: Spontaneous
  Country: US (occurrence: US)
  Receive Date: 20150515
  Receipt Date: 20150515
  Transmission Date: 20150821
  Serious: Yes (Other)
  Sender: FDA-Public Use
  Company Number: US-TEVA-563156USA

PATIENT
  Age: 36 Year
  Sex: Female

DRUGS (1)
  1. COPAXONE [Suspect]
     Active Substance: GLATIRAMER ACETATE
     Indication: MULTIPLE SCLEROSIS
     Dates: start: 20150428

REACTIONS (5)
  - Injection site reaction [Unknown]
  - Throat tightness [Unknown]
  - Nasopharyngitis [Unknown]
  - Drug hypersensitivity [Unknown]
  - Throat irritation [Unknown]

NARRATIVE: CASE EVENT DATE: 20150501
